FAERS Safety Report 5403896-X (Version None)
Quarter: 2007Q3

REPORT INFORMATION
  Report Type: 
  Country: None (occurrence: None)
  Receive Date: 20070802
  Receipt Date: 20070706
  Transmission Date: 20080115
  Serious: Yes (Other)
  Sender: FDA-Public Use
  Company Number: CH-JNJFOC-20070701625

PATIENT
  Age: 10 Year
  Sex: Male

DRUGS (4)
  1. CONCERTA [Suspect]
     Indication: ATTENTION DEFICIT/HYPERACTIVITY DISORDER
     Route: 048
  2. TIAPRIDE [Suspect]
     Indication: TOURETTE'S DISORDER
     Route: 048
  3. TIAPRIDE [Suspect]
     Indication: TIC
     Route: 048
  4. RITALIN [Suspect]
     Indication: TOURETTE'S DISORDER

REACTIONS (3)
  - BREATH ODOUR [None]
  - TIC [None]
  - TOOTH DISCOLOURATION [None]
